FAERS Safety Report 10758065 (Version 2)
Quarter: 2015Q2

REPORT INFORMATION
  Report Type: Spontaneous
  Country: DE (occurrence: DE)
  Receive Date: 20150203
  Receipt Date: 20150504
  Transmission Date: 20150821
  Serious: Yes (Hospitalization, Other)
  Sender: FDA-Public Use
  Company Number: DE-ABBVIE-15K-062-1340781-00

PATIENT
  Age: 27 Year
  Sex: Female

DRUGS (16)
  1. AZATHIOPRINE. [Suspect]
     Active Substance: AZATHIOPRINE
     Indication: CROHN^S DISEASE
     Route: 065
     Dates: start: 2004, end: 2010
  2. AZATHIOPRINE. [Suspect]
     Active Substance: AZATHIOPRINE
     Dosage: 2-0-0
     Route: 065
     Dates: start: 201310
  3. PANTOPRAZOLE [Concomitant]
     Active Substance: PANTOPRAZOLE SODIUM
     Dosage: ONE TABLET AS NEEDED
  4. MUCOFALK [Concomitant]
     Indication: PRODUCT USED FOR UNKNOWN INDICATION
     Dosage: UP TO 3 TABLESPOONS DAILY
  5. HUMIRA [Suspect]
     Active Substance: ADALIMUMAB
     Route: 058
     Dates: start: 2014, end: 2014
  6. HUMIRA [Suspect]
     Active Substance: ADALIMUMAB
     Route: 058
     Dates: start: 2014
  7. AMITRIPTYLINE [Concomitant]
     Active Substance: AMITRIPTYLINE
     Indication: PRODUCT USED FOR UNKNOWN INDICATION
     Dosage: 0-0-1
  8. ENTEROPLANT [Concomitant]
     Indication: IRRITABLE BOWEL SYNDROME
  9. ENTEROPLANT [Concomitant]
     Dosage: UP TO TWO DAILY
     Dates: start: 2014, end: 2014
  10. COLESTYRAMINE [Suspect]
     Active Substance: CHOLESTYRAMINE
     Indication: BILE ACID MALABSORPTION
     Dosage: UP TP 2 SACHETS DAILY
     Route: 065
     Dates: end: 2014
  11. BUDESONIDE. [Concomitant]
     Active Substance: BUDESONIDE
     Indication: CROHN^S DISEASE
     Dates: start: 2011
  12. PANTOPRAZOLE [Concomitant]
     Active Substance: PANTOPRAZOLE SODIUM
     Dosage: 0-0-0-1
     Dates: start: 2014, end: 2014
  13. PANTOPRAZOLE [Concomitant]
     Active Substance: PANTOPRAZOLE SODIUM
     Indication: GASTROOESOPHAGEAL REFLUX DISEASE
     Dosage: 1-0-0
  14. HUMIRA [Suspect]
     Active Substance: ADALIMUMAB
     Indication: CROHN^S DISEASE
     Route: 058
     Dates: start: 201211
  15. AZATHIOPRINE. [Suspect]
     Active Substance: AZATHIOPRINE
     Route: 065
     Dates: start: 2011, end: 2012
  16. ENTEROPLANT [Concomitant]
     Dosage: UP TO THREE DAILY
     Dates: start: 2014

REACTIONS (19)
  - Post procedural complication [Unknown]
  - Stress [Unknown]
  - Scar [Unknown]
  - Cholelithiasis [Unknown]
  - Impaired healing [Unknown]
  - Hyperaesthesia [Unknown]
  - Drug intolerance [Unknown]
  - Enteritis infectious [Unknown]
  - Pseudopolyp [Unknown]
  - Abdominal pain lower [Unknown]
  - Gastroenteritis [Unknown]
  - Irritable bowel syndrome [Unknown]
  - Crohn^s disease [Unknown]
  - Wound [Unknown]
  - Colitis [Unknown]
  - Malignant melanoma [Recovered/Resolved]
  - Crohn^s disease [Recovered/Resolved]
  - Faecal calprotectin decreased [Unknown]
  - Abnormal faeces [Unknown]

NARRATIVE: CASE EVENT DATE: 2013
